FAERS Safety Report 18999808 (Version 15)
Quarter: 2025Q1

REPORT INFORMATION
  Report Type: Spontaneous
  Country: US (occurrence: US)
  Receive Date: 20210311
  Receipt Date: 20250321
  Transmission Date: 20250409
  Serious: Yes (Hospitalization, Other)
  Sender: PFIZER
  Company Number: US-PFIZER INC-2021201035

PATIENT
  Age: 55 Year
  Sex: Female
  Weight: 83.91 kg

DRUGS (17)
  1. SOMAVERT [Suspect]
     Active Substance: PEGVISOMANT
     Indication: Acromegaly
     Dosage: 10 MG, DAILY
     Route: 058
  2. SOMAVERT [Suspect]
     Active Substance: PEGVISOMANT
  3. SOMAVERT [Suspect]
     Active Substance: PEGVISOMANT
     Dosage: 20 MG, DAILY
     Dates: start: 20131121
  4. SOMAVERT [Suspect]
     Active Substance: PEGVISOMANT
     Dosage: 30 MG, DAILY
     Route: 058
     Dates: start: 20140201
  5. SOMAVERT [Suspect]
     Active Substance: PEGVISOMANT
     Dosage: 30 MG, DAILY
     Route: 058
     Dates: start: 20140201
  6. SOMAVERT [Suspect]
     Active Substance: PEGVISOMANT
     Dosage: 30 MG, DAILY
     Route: 058
     Dates: start: 20140101, end: 20200901
  7. SOMAVERT [Suspect]
     Active Substance: PEGVISOMANT
     Dosage: 30 MG, 1X/DAY
     Route: 058
     Dates: start: 2014
  8. SOMAVERT [Suspect]
     Active Substance: PEGVISOMANT
     Dosage: 30 MG, DAILY
     Route: 048
     Dates: start: 20190301
  9. SOMAVERT [Suspect]
     Active Substance: PEGVISOMANT
     Dosage: 30 MG, DAILY
     Route: 058
     Dates: start: 20190301
  10. SOMAVERT [Suspect]
     Active Substance: PEGVISOMANT
     Dates: start: 20200905, end: 20211001
  11. SOMAVERT [Suspect]
     Active Substance: PEGVISOMANT
     Dates: start: 20211010, end: 20211229
  12. SOMAVERT [Suspect]
     Active Substance: PEGVISOMANT
     Dates: start: 20220102, end: 20220128
  13. SOMAVERT [Suspect]
     Active Substance: PEGVISOMANT
     Dates: start: 20220128
  14. SANDOSTATIN [Concomitant]
     Active Substance: OCTREOTIDE ACETATE
  15. TYLENOL [Concomitant]
     Active Substance: ACETAMINOPHEN
  16. ROSUVASTATIN [Concomitant]
     Active Substance: ROSUVASTATIN
  17. MYCAPSSA [Concomitant]
     Active Substance: OCTREOTIDE

REACTIONS (27)
  - Hepatic function abnormal [Recovered/Resolved]
  - Renal impairment [Recovered/Resolved]
  - Chromaturia [Recovered/Resolved]
  - Cholelithiasis [Not Recovered/Not Resolved]
  - Biliary obstruction [Recovered/Resolved]
  - Gallbladder disorder [Recovered/Resolved]
  - Pancreatitis [Recovered/Resolved]
  - Loss of consciousness [Recovered/Resolved]
  - Thrombosis [Unknown]
  - Hypoglycaemia [Recovered/Resolved]
  - Dyspnoea [Recovered/Resolved]
  - Chest pain [Recovered/Resolved]
  - Liver function test increased [Recovered/Resolved]
  - Injection site extravasation [Recovered/Resolved]
  - Cholecystectomy [Unknown]
  - Diabetes insipidus [Not Recovered/Not Resolved]
  - Therapeutic product effect incomplete [Unknown]
  - Pain [Unknown]
  - Therapeutic response unexpected [Unknown]
  - Injection site bruising [Unknown]
  - Hepatic enzyme abnormal [Unknown]
  - Arthralgia [Not Recovered/Not Resolved]
  - Pre-existing condition improved [Unknown]
  - Fatigue [Not Recovered/Not Resolved]
  - Product dose omission issue [Unknown]
  - Incorrect dose administered [Unknown]
  - Off label use [Unknown]

NARRATIVE: CASE EVENT DATE: 20200901
